FAERS Safety Report 9399201 (Version 1)
Quarter: 2013Q3

REPORT INFORMATION
  Report Type: Spontaneous
  Country: IT (occurrence: None)
  Receive Date: 20130710
  Receipt Date: 20130710
  Transmission Date: 20140515
  Serious: Yes (Hospitalization)
  Sender: FDA-Public Use
  Company Number: AUR-APL-2013-05821

PATIENT
  Age: 88 Year
  Sex: Male

DRUGS (1)
  1. METFORMIN [Suspect]

REACTIONS (1)
  - Hepatitis cholestatic [None]
